FAERS Safety Report 24270015 (Version 1)
Quarter: 2024Q3

REPORT INFORMATION
  Report Type: Spontaneous
  Country: DE (occurrence: DE)
  Receive Date: 20240830
  Receipt Date: 20240830
  Transmission Date: 20241017
  Serious: Yes (Other)
  Sender: MYLAN
  Company Number: DE-SANDOZ-SDZ2024DE072902

PATIENT

DRUGS (2)
  1. CANDESARTAN [Suspect]
     Active Substance: CANDESARTAN
     Indication: Blood pressure management
     Dosage: 4 MILLIGRAM, QD
     Route: 065
     Dates: start: 2014
  2. CANDESARTAN [Suspect]
     Active Substance: CANDESARTAN
     Dosage: 8 MILLIGRAM (8 MG FOR ABOUT 8 WEEKS)
     Route: 065
     Dates: start: 2024

REACTIONS (3)
  - Syncope [Unknown]
  - Arthropod sting [Unknown]
  - Blood pressure decreased [Recovered/Resolved]

NARRATIVE: CASE EVENT DATE: 20240801
